FAERS Safety Report 5820708-0 (Version None)
Quarter: 2008Q3

REPORT INFORMATION
  Report Type: 
  Country: None (occurrence: None)
  Receive Date: 20080724
  Receipt Date: 20080306
  Transmission Date: 20090109
  Serious: No
  Sender: FDA-Public Use
  Company Number: A0713817A

PATIENT
  Age: 78 Year
  Sex: Female

DRUGS (10)
  1. AVANDIA [Suspect]
     Dosage: 4MG PER DAY
     Route: 048
     Dates: start: 20050401, end: 20070901
  2. HYDROCODONE BITARTRATE [Concomitant]
  3. GLIPIZIDE [Concomitant]
  4. TRICOR [Concomitant]
  5. ZETIA [Concomitant]
  6. TORSEMIDE [Concomitant]
  7. COREG [Concomitant]
  8. AMITRIPTYLINE HCL [Concomitant]
  9. LISINOPRIL [Concomitant]
  10. LEVOTHYROXINE SODIUM [Concomitant]

REACTIONS (1)
  - BLOOD TRIGLYCERIDES INCREASED [None]
